FAERS Safety Report 15784788 (Version 1)
Quarter: 2019Q1

REPORT INFORMATION
  Report Type: Report from Study
  Country: US (occurrence: US)
  Receive Date: 20190103
  Receipt Date: 20190103
  Transmission Date: 20190417
  Serious: No
  Sender: FDA-Public Use
  Company Number: PHEH2018US055074

PATIENT
  Sex: Female

DRUGS (1)
  1. COSENTYX [Suspect]
     Active Substance: SECUKINUMAB
     Indication: PRODUCT USED FOR UNKNOWN INDICATION
     Dosage: 300 MG, QMO
     Route: 058

REACTIONS (11)
  - Product administration error [Unknown]
  - Skin exfoliation [Unknown]
  - Skin lesion [Unknown]
  - Underdose [Unknown]
  - Dry skin [Unknown]
  - Hypoaesthesia [Recovered/Resolved]
  - Injection site pain [Unknown]
  - Injury associated with device [Unknown]
  - Skin fissures [Unknown]
  - Accidental exposure to product [Unknown]
  - Skin haemorrhage [Unknown]
